FAERS Safety Report 9292502 (Version 1)
Quarter: 2013Q2

REPORT INFORMATION
  Report Type: Spontaneous
  Country: US (occurrence: US)
  Receive Date: 20130516
  Receipt Date: 20130516
  Transmission Date: 20140414
  Serious: Yes (Other)
  Sender: FDA-Public Use
  Company Number: US-009507513-1305USA006746

PATIENT
  Age: 66 Year
  Sex: Male
  Weight: 93.5 kg

DRUGS (23)
  1. DEXAMETHASONE [Suspect]
     Indication: PLASMA CELL MYELOMA
     Dosage: 20 MG 8 OUT OF 21 DAYS
     Route: 048
     Dates: start: 20130219
  2. REVLIMID [Suspect]
     Indication: PLASMA CELL MYELOMA
     Dosage: 25 MG, QD
     Route: 048
     Dates: start: 20130219, end: 201304
  3. REVLIMID [Suspect]
     Dosage: 10 MG, QD
     Route: 048
     Dates: start: 20130422
  4. VELCADE [Suspect]
     Indication: PLASMA CELL MYELOMA
     Dosage: 1.3 MG/M2, AS DIRECTED
     Route: 058
     Dates: start: 20130219
  5. ZOMETA [Concomitant]
     Indication: ALLERGY PROPHYLAXIS
     Dosage: 28 IN 28D
  6. ASPIRIN [Concomitant]
     Dosage: 81 MG, QD
     Route: 048
     Dates: start: 20130304
  7. DUONEB [Concomitant]
     Dosage: 0.5-3MG/3 (1 PUFF BY INHALATION AS DIRECTED)
     Route: 055
     Dates: start: 20130304
  8. FLOMAX (TAMSULOSIN HYDROCHLORIDE) [Concomitant]
     Dosage: 0.4 MG, QD
     Route: 048
     Dates: start: 20130304
  9. LISINOPRIL [Concomitant]
     Dosage: 5 MG, QD
     Route: 048
     Dates: start: 20130312
  10. METOPROLOL SUCCINATE [Concomitant]
     Dosage: 100 MG, QD
     Route: 048
  11. PRILOSEC [Concomitant]
     Dosage: 20 MG, QD
     Route: 048
     Dates: start: 20130304
  12. PROCHLORPERAZINE MALEATE [Concomitant]
     Indication: NAUSEA
     Dosage: 10 MG, Q6H
     Route: 048
     Dates: start: 20130304
  13. DARBEPOETIN ALFA [Concomitant]
     Dosage: UNK
     Dates: start: 20130304
  14. SODIUM CHLORIDE [Concomitant]
     Dosage: UNK
  15. POTASSIUM CHLORIDE [Concomitant]
     Dosage: UNK
  16. FLUDROCORTISONE ACETATE [Concomitant]
     Dosage: 0.1 MG, QD
     Route: 048
     Dates: start: 20130304
  17. VICODIN [Concomitant]
     Indication: PRURITUS
     Dosage: 5-325MG, Q4H
     Route: 048
     Dates: start: 20130304
  18. TYLENOL [Concomitant]
     Dosage: 325 MG, 2 TABS AS DIRECTED
     Route: 048
     Dates: start: 20130304
  19. FENTANYL [Concomitant]
     Indication: BACK PAIN
     Dosage: 1 DF, EVERY 72 HOURS
     Route: 062
     Dates: start: 20130304
  20. HUMULIN 70/30 [Concomitant]
     Dosage: 2 UNITS, AS DIRECTED
     Route: 058
     Dates: start: 20130304
  21. SODIUM CHLORIDE [Concomitant]
     Dosage: UNK
  22. CALCIUM GLUCONATE [Concomitant]
     Dosage: UNK
  23. DICLOXACILLIN SODIUM [Concomitant]
     Dosage: 250 MG, QID
     Route: 048
     Dates: start: 20130304

REACTIONS (5)
  - Pancytopenia [Recovered/Resolved]
  - Red blood cell count decreased [Unknown]
  - Pruritus [Not Recovered/Not Resolved]
  - Oropharyngeal pain [Unknown]
  - Neutropenia [Unknown]
